FAERS Safety Report 14937956 (Version 2)
Quarter: 2018Q3

REPORT INFORMATION
  Report Type: Spontaneous
  Country: US (occurrence: US)
  Receive Date: 20180525
  Receipt Date: 20180905
  Transmission Date: 20181010
  Serious: No
  Sender: FDA-Public Use
  Company Number: US-BIOGEN-2018BI00582883

PATIENT
  Sex: Male

DRUGS (3)
  1. AVONEX [Suspect]
     Active Substance: INTERFERON BETA-1A
     Route: 065
     Dates: start: 20150101
  2. AVONEX [Suspect]
     Active Substance: INTERFERON BETA-1A
     Indication: MULTIPLE SCLEROSIS
     Route: 065
     Dates: start: 20170627
  3. TECFIDERA [Interacting]
     Active Substance: DIMETHYL FUMARATE
     Route: 065
     Dates: start: 20180531

REACTIONS (3)
  - Gait disturbance [Unknown]
  - Mobility decreased [Unknown]
  - Drug dose omission [Unknown]
